FAERS Safety Report 6287996-0 (Version None)
Quarter: 2009Q3

REPORT INFORMATION
  Report Type: 
  Country: None (occurrence: None)
  Receive Date: 20090729
  Receipt Date: 20090717
  Transmission Date: 20100115
  Serious: Yes (Death, Hospitalization)
  Sender: FDA-Public Use
  Company Number: DE-ROCHE-482255

PATIENT
  Age: 35 Year
  Sex: Female

DRUGS (3)
  1. CAPECITABINE [Suspect]
     Dosage: D1 - D14; FORM: PILL
     Route: 048
     Dates: start: 20060602, end: 20060615
  2. EUTHYROX [Concomitant]
     Route: 048
  3. ENOXAPARIN SODIUM [Concomitant]
     Indication: THROMBOSIS PROPHYLAXIS
     Route: 058
     Dates: start: 19960703, end: 20060705

REACTIONS (3)
  - BREAST CANCER METASTATIC [None]
  - STRIDOR [None]
  - TRACHEAL OBSTRUCTION [None]
